FAERS Safety Report 4389530-9 (Version None)
Quarter: 2004Q2

REPORT INFORMATION
  Report Type: 
  Country: None (occurrence: None)
  Receive Date: 20040628
  Receipt Date: 20040616
  Transmission Date: 20050107
  Serious: Yes (Hospitalization)
  Sender: FDA-Public Use
  Company Number: FR-JNJFOC-20040604078

PATIENT
  Age: 82 Year
  Sex: Female

DRUGS (8)
  1. RISPERDAL [Suspect]
     Indication: DRUG USE FOR UNKNOWN INDICATION
     Dosage: 2 MG, 2 IN 1 DAY, ORAL
     Route: 048
     Dates: end: 20040115
  2. TRIMETAZIDINE SERVIER (TRIMETAZIDINE) [Suspect]
     Indication: DRUG USE FOR UNKNOWN INDICATION
     Dosage: 40 MG, IN 1 DAY, ORAL
     Route: 048
     Dates: end: 20040115
  3. NICARDIPINE HCL [Concomitant]
  4. APROVEL (IRBESARTAN) [Concomitant]
  5. SOPROL (BISOPROLOL FUMARATE) [Concomitant]
  6. ACULAR [Concomitant]
  7. INSULINES MIXTARD (INSULIN) [Concomitant]
  8. INSULINES ACTRAPID (INSULIN) [Concomitant]

REACTIONS (4)
  - CEREBROVASCULAR ACCIDENT [None]
  - DRUG INTERACTION [None]
  - STUPOR [None]
  - VASCULAR DEMENTIA [None]
